FAERS Safety Report 7793740 (Version 4)
Quarter: 2013Q1

REPORT INFORMATION
  Report Type: Spontaneous
  Country: US (occurrence: None)
  Receive Date: 20101221
  Receipt Date: 20130222
  Transmission Date: 20140127
  Serious: Yes (Other)
  Sender: FDA-Public Use
  Company Number: ACO_20830_2010

PATIENT
  Age: 61 Year
  Sex: Female

DRUGS (5)
  1. AMPYRA [Suspect]
     Indication: PRODUCT USED FOR UNKNOWN INDICATION
     Dosage: PATIENT TOOK BOTH PILLS IN THE MORNING
     Route: 048
     Dates: start: 20101020, end: 20101207
  2. BACLOFEN (BACLOFEN) [Concomitant]
  3. TIZANIDINE (TIZANIDINE HYDROCHLORIDE) [Concomitant]
  4. OXYBUTYNIN (OXYBUTYNIN) [Concomitant]
  5. SYMMETREL (AMANTADINE HYDROCHLORIDE) [Concomitant]

REACTIONS (4)
  - Loss of consciousness [None]
  - Accidental overdose [None]
  - Personality change [None]
  - Convulsion [None]
